FAERS Safety Report 26191308 (Version 1)
Quarter: 2025Q4

REPORT INFORMATION
  Report Type: Spontaneous
  Country: US (occurrence: None)
  Receive Date: 20251223
  Receipt Date: 20251223
  Transmission Date: 20260117
  Serious: Yes (Other)
  Sender: FDA-CTU
  Company Number: None

PATIENT
  Age: 44 Year
  Sex: Female
  Weight: 78.75 kg

DRUGS (8)
  1. TIRZEPATIDE [Suspect]
     Active Substance: TIRZEPATIDE
     Indication: Weight decreased
  2. SEMAGLUTIDE [Suspect]
     Active Substance: SEMAGLUTIDE
  3. TIRZEPATIDE [Suspect]
     Active Substance: TIRZEPATIDE
  4. EFFEXOR XR [Concomitant]
     Active Substance: VENLAFAXINE HYDROCHLORIDE
  5. estrogen and progesterone [Concomitant]
  6. CALCIUM [Concomitant]
     Active Substance: CALCIUM
  7. roseprim oil [Concomitant]
  8. PROBIOTICS NOS [Concomitant]
     Active Substance: PROBIOTICS NOS

REACTIONS (5)
  - Drug ineffective [None]
  - Depression [None]
  - Panic attack [None]
  - Suicidal ideation [None]
  - Weight decreased [None]

NARRATIVE: CASE EVENT DATE: 20250620
